FAERS Safety Report 12884813 (Version 2)
Quarter: 2016Q4

REPORT INFORMATION
  Report Type: Report from Study
  Country: US (occurrence: US)
  Receive Date: 20161026
  Receipt Date: 20161120
  Transmission Date: 20170207
  Serious: Yes (Hospitalization)
  Sender: FDA-Public Use
  Company Number: US-ROCHE-1843936

PATIENT
  Age: 78 Year
  Sex: Male
  Weight: 53.7 kg

DRUGS (11)
  1. BEVACIZUMAB [Suspect]
     Active Substance: BEVACIZUMAB
     Indication: PANCREATIC NEUROENDOCRINE TUMOUR METASTATIC
     Dosage: STRENGTH- 25 MG/ML?CYCLE 22 DAY 1?DAY 1 AND 15
     Route: 042
     Dates: start: 20141203, end: 20161005
  2. AMLODIPIN [Concomitant]
     Active Substance: AMLODIPINE BESYLATE
     Route: 065
     Dates: start: 20160725
  3. LISPRO INSULIN [Concomitant]
     Active Substance: INSULIN LISPRO
  4. BRINZOLAMIDE [Concomitant]
     Active Substance: BRINZOLAMIDE
  5. BEVACIZUMAB [Suspect]
     Active Substance: BEVACIZUMAB
     Dosage: STRENGTH- 25 MG/ML?CYCLE 22 DAY 1
     Route: 042
     Dates: start: 20161005
  6. CALCIUM CARBONATE. [Concomitant]
     Active Substance: CALCIUM CARBONATE
     Route: 065
     Dates: start: 20160907
  7. CLONAZEPAM. [Concomitant]
     Active Substance: CLONAZEPAM
  8. MEGESTROL [Concomitant]
     Active Substance: MEGESTROL
     Route: 065
     Dates: start: 20160427
  9. DORZOLAMIDE [Concomitant]
     Active Substance: DORZOLAMIDE
  10. GLARGINE [Concomitant]
     Route: 065
     Dates: start: 20160721
  11. LISINOPRIL. [Concomitant]
     Active Substance: LISINOPRIL
     Route: 065
     Dates: start: 20160427

REACTIONS (3)
  - Faeces discoloured [Unknown]
  - Upper gastrointestinal haemorrhage [Unknown]
  - Discomfort [Unknown]

NARRATIVE: CASE EVENT DATE: 20161007
